FAERS Safety Report 18013147 (Version 1)
Quarter: 2020Q3

REPORT INFORMATION
  Report Type: Spontaneous
  Country: US (occurrence: US)
  Receive Date: 20200713
  Receipt Date: 20200713
  Transmission Date: 20201103
  Serious: No
  Sender: FDA-Public Use
  Company Number: US-PFIZER INC-2020264713

PATIENT
  Age: 65 Year
  Sex: Female

DRUGS (2)
  1. PHOSPHOLINE IODIDE [Suspect]
     Active Substance: ECHOTHIOPHATE IODIDE
     Dosage: UNK ( 6.25MG/5ML )
  2. ACETAZOLAMIDE [ACETAZOLAMIDE SODIUM] [Suspect]
     Active Substance: ACETAZOLAMIDE SODIUM
     Dosage: UNK

REACTIONS (2)
  - Visual impairment [Unknown]
  - Illness [Unknown]
